FAERS Safety Report 6717161-1 (Version None)
Quarter: 2010Q2

REPORT INFORMATION
  Report Type: 
  Country: None (occurrence: None)
  Receive Date: 20100504
  Receipt Date: 20100417
  Transmission Date: 20101027
  Serious: Yes (Other)
  Sender: FDA-Public Use
  Company Number: 2010-00006

PATIENT
  Age: 43 Year
  Sex: Female
  Weight: 57.6068 kg

DRUGS (3)
  1. C+C ADV ACNE SPOT TREATMENT 2%SALICYLIC ACID [Suspect]
     Indication: ACNE
     Dosage: ONE TIME, ONCE, TOPICAL
     Route: 061
     Dates: start: 20100417, end: 20100417
  2. TRIAMCINOLONE ACETONTILDE [Concomitant]
  3. AZITHROMYCIN [Concomitant]

REACTIONS (1)
  - APPLICATION SITE BURN [None]
